FAERS Safety Report 15279357 (Version 1)
Quarter: 2018Q3

REPORT INFORMATION
  Report Type: Spontaneous
  Country: US (occurrence: US)
  Receive Date: 20180730
  Receipt Date: 20180730
  Transmission Date: 20181010
  Serious: No
  Sender: FDA-Public Use
  Company Number: None

PATIENT
  Age: 33 Year
  Sex: Female
  Weight: 56.7 kg

DRUGS (2)
  1. LISINOPRIL. [Concomitant]
     Active Substance: LISINOPRIL
  2. MIRENA [Suspect]
     Active Substance: LEVONORGESTREL
     Dates: start: 20140515, end: 20180726

REACTIONS (3)
  - Muscle spasms [None]
  - Pain [None]
  - Nausea [None]

NARRATIVE: CASE EVENT DATE: 20180720
